FAERS Safety Report 10431265 (Version 2)
Quarter: 2014Q3

REPORT INFORMATION
  Report Type: Spontaneous
  Country: BR (occurrence: BR)
  Receive Date: 20140904
  Receipt Date: 20140924
  Transmission Date: 20150326
  Serious: Yes (Life-Threatening)
  Sender: FDA-Public Use
  Company Number: BR-PFIZER INC-2014245011

PATIENT
  Age: 31 Year
  Sex: Female

DRUGS (1)
  1. TECTA [Suspect]
     Active Substance: PANTOPRAZOLE MAGNESIUM
     Dosage: 40 MG, UNK
     Route: 048

REACTIONS (16)
  - Back pain [Unknown]
  - Diarrhoea [Unknown]
  - Headache [Unknown]
  - Abdominal pain [Unknown]
  - Disturbance in social behaviour [Unknown]
  - Myalgia [Unknown]
  - Chills [Unknown]
  - Dizziness [Unknown]
  - Arthralgia [Unknown]
  - Asthenia [Unknown]
  - Insomnia [Unknown]
  - Vision blurred [Unknown]
  - Cognitive disorder [Unknown]
  - Anxiety [Unknown]
  - Pruritus [Unknown]
  - Hallucination [Unknown]
